FAERS Safety Report 6258987-0 (Version None)
Quarter: 2009Q3

REPORT INFORMATION
  Report Type: 
  Country: None (occurrence: None)
  Receive Date: 20090707
  Receipt Date: 20090629
  Transmission Date: 20100115
  Serious: Yes (Other)
  Sender: FDA-Public Use
  Company Number: PHHY2009MX26356

PATIENT
  Age: 77 Year
  Sex: Female

DRUGS (2)
  1. ACLASTA [Suspect]
     Indication: OSTEOPOROSIS
     Dosage: 5 MG/100 ML
     Dates: start: 20070601
  2. ACLASTA [Suspect]
     Dosage: 5 MG/100 ML
     Dates: start: 20080601

REACTIONS (5)
  - DENTAL OPERATION [None]
  - GINGIVAL DISORDER [None]
  - GINGIVAL INFECTION [None]
  - JAW CYST [None]
  - TOOTH DISORDER [None]
